FAERS Safety Report 14984399 (Version 2)
Quarter: 2018Q3

REPORT INFORMATION
  Report Type: Spontaneous
  Country: US (occurrence: US)
  Receive Date: 20180607
  Receipt Date: 20180713
  Transmission Date: 20181010
  Serious: Yes (Hospitalization, Other)
  Sender: FDA-Public Use
  Company Number: US-JNJFOC-20180542117

PATIENT
  Age: 63 Year
  Sex: Male
  Weight: 95.2 kg

DRUGS (5)
  1. ERLEADA [Suspect]
     Active Substance: APALUTAMIDE
     Indication: PROSTATE CANCER RECURRENT
     Route: 048
     Dates: start: 20180410, end: 20180525
  2. ASA [Concomitant]
     Active Substance: ASPIRIN
     Dates: start: 2017
  3. CALCIUM VITAMIN D [Concomitant]
     Active Substance: CALCIUM\VITAMIN D
     Indication: NUTRITIONAL SUPPLEMENTATION
  4. ZOLPIDEM [Concomitant]
     Active Substance: ZOLPIDEM\ZOLPIDEM TARTRATE
     Indication: INSOMNIA
     Dates: start: 2015
  5. TAMSULOSIN [Concomitant]
     Active Substance: TAMSULOSIN
     Indication: POLLAKIURIA
     Dates: start: 2015

REACTIONS (1)
  - Gastric ulcer helicobacter [Recovered/Resolved]

NARRATIVE: CASE EVENT DATE: 20180529
